FAERS Safety Report 9446005 (Version 1)
Quarter: 2013Q3

REPORT INFORMATION
  Report Type: Spontaneous
  Country: ZA (occurrence: ZA)
  Receive Date: 20130807
  Receipt Date: 20130807
  Transmission Date: 20140515
  Serious: Yes (Other)
  Sender: FDA-Public Use
  Company Number: ALCN2013ZA003984

PATIENT
  Sex: 0

DRUGS (1)
  1. NEVANAC [Suspect]
     Dosage: UNK
     Route: 047

REACTIONS (1)
  - Hallucination, visual [Unknown]
